FAERS Safety Report 17097132 (Version 1)
Quarter: 2019Q4

REPORT INFORMATION
  Report Type: Spontaneous
  Country: AT (occurrence: AT)
  Receive Date: 20191202
  Receipt Date: 20191202
  Transmission Date: 20200122
  Serious: Yes (Hospitalization)
  Sender: FDA-Public Use
  Company Number: AT-B.I. PHARMACEUTICALS,INC./RIDGEFIELD-2019-BI-115997

PATIENT
  Sex: Female

DRUGS (1)
  1. PRADAXA [Suspect]
     Active Substance: DABIGATRAN ETEXILATE MESYLATE
     Indication: ATRIAL FIBRILLATION
     Route: 065

REACTIONS (10)
  - Hypertension [Unknown]
  - Cerebral microangiopathy [Unknown]
  - Aortic valve stenosis [Unknown]
  - Carpal tunnel syndrome [Unknown]
  - Cerebral infarction [Unknown]
  - Dysphagia [Unknown]
  - Type 2 diabetes mellitus [Unknown]
  - Urinary tract infection [Unknown]
  - Dysarthria [Unknown]
  - Peripheral sensory neuropathy [Unknown]
